FAERS Safety Report 24883689 (Version 1)
Quarter: 2025Q1

REPORT INFORMATION
  Report Type: Spontaneous
  Country: US (occurrence: None)
  Receive Date: 20250124
  Receipt Date: 20250124
  Transmission Date: 20250409
  Serious: Yes (Hospitalization)
  Sender: FDA-CTU
  Company Number: None

PATIENT

DRUGS (1)
  1. ALCOHOL\BENZYL NICOTINATE\MENADIONE\SALICYLIC ACID [Suspect]
     Active Substance: ALCOHOL\BENZYL NICOTINATE\MENADIONE\SALICYLIC ACID

REACTIONS (1)
  - Hospitalisation [None]

NARRATIVE: CASE EVENT DATE: 20250120
